FAERS Safety Report 10032434 (Version 1)
Quarter: 2014Q1

REPORT INFORMATION
  Report Type: Spontaneous
  Country: None (occurrence: None)
  Receive Date: 20140320
  Receipt Date: 20140320
  Transmission Date: 20141002
  Serious: Yes (Hospitalization)
  Sender: FDA-Public Use
  Company Number: 2014-AU-000006

PATIENT
  Age: 28 Year
  Sex: Male

DRUGS (3)
  1. DOXYCYCLINE [Suspect]
     Route: 048
     Dates: start: 20130901, end: 20131207
  2. MR. HYDE PRE WORKOUT AMPLIFIER [Suspect]
     Route: 048
     Dates: start: 20131007, end: 20131202
  3. ISO-100 WHEY PROTEIN POWDER [Suspect]
     Route: 048
     Dates: start: 20131007, end: 20131207

REACTIONS (1)
  - Rhabdomyolysis [None]
